FAERS Safety Report 18919822 (Version 1)
Quarter: 2021Q1

REPORT INFORMATION
  Report Type: Spontaneous
  Country: US (occurrence: US)
  Receive Date: 20210221
  Receipt Date: 20210221
  Transmission Date: 20210420
  Serious: No
  Sender: FDA-Public Use
  Company Number: US-ELI_LILLY_AND_COMPANY-US202102002932

PATIENT
  Sex: Female

DRUGS (2)
  1. VERZENIO [Suspect]
     Active Substance: ABEMACICLIB
     Indication: BREAST CANCER
     Dosage: 150 MG, UNKNOWN
     Route: 048
  2. VERZENIO [Suspect]
     Active Substance: ABEMACICLIB
     Dosage: 50 MG, UNKNOWN
     Route: 048

REACTIONS (7)
  - Malaise [Recovered/Resolved]
  - Diarrhoea [Recovered/Resolved]
  - Dyspnoea [Recovered/Resolved]
  - Abdominal pain [Recovered/Resolved]
  - Fatigue [Recovered/Resolved]
  - Nausea [Recovered/Resolved]
  - Decreased appetite [Recovered/Resolved]
